FAERS Safety Report 7198922-4 (Version None)
Quarter: 2010Q4

REPORT INFORMATION
  Report Type: 
  Country: None (occurrence: None)
  Receive Date: 20101227
  Receipt Date: 20101215
  Transmission Date: 20110411
  Serious: Yes (Other)
  Sender: FDA-Public Use
  Company Number: CA-GENENTECH-311103

PATIENT
  Sex: Female

DRUGS (1)
  1. LUCENTIS [Suspect]
     Indication: PRODUCT USED FOR UNKNOWN INDICATION
     Dosage: 03.5 MG, UNKNOWN
     Route: 031
     Dates: start: 20101203

REACTIONS (3)
  - NASOPHARYNGITIS [None]
  - VISION BLURRED [None]
  - VISUAL ACUITY REDUCED [None]
